FAERS Safety Report 5083946-3 (Version None)
Quarter: 2006Q3

REPORT INFORMATION
  Report Type: 
  Country: None (occurrence: None)
  Receive Date: 20060727
  Receipt Date: 20060523
  Transmission Date: 20061208
  Serious: Yes (Other)
  Sender: FDA-Public Use
  Company Number: 2006068497

PATIENT
  Age: 42 Year
  Sex: Male
  Weight: 77.1115 kg

DRUGS (5)
  1. LYRICA [Suspect]
     Indication: MUSCLE CONTRACTIONS INVOLUNTARY
     Dosage: 150 MG (75 MG, 2 IN 1 D), UNKNOWN
     Dates: start: 20060518
  2. ZOCOR [Concomitant]
  3. ANTIHYPERTENSIVES (ANTIHYPERTENSIVES) [Concomitant]
  4. ASPIRIN [Suspect]
  5. VITAMIN E [Concomitant]

REACTIONS (1)
  - DRUG INEFFECTIVE [None]
